FAERS Safety Report 9041368 (Version 1)
Quarter: 2013Q1

REPORT INFORMATION
  Report Type: Spontaneous
  Country: US (occurrence: None)
  Receive Date: 20130125
  Receipt Date: 20130125
  Transmission Date: 20140127
  Serious: No
  Sender: FDA-Public Use
  Company Number: None

PATIENT
  Age: 43 Year
  Sex: Male
  Weight: 63.5 kg

DRUGS (1)
  1. 1MG ALPRAZOLAM [Suspect]
     Dosage: 1MG X 3 DAY  3 DAY
     Dates: start: 20121217

REACTIONS (6)
  - Dyspepsia [None]
  - Dyspepsia [None]
  - Vision blurred [None]
  - Flatulence [None]
  - Condition aggravated [None]
  - Product substitution issue [None]
